FAERS Safety Report 6748208-4 (Version None)
Quarter: 2010Q2

REPORT INFORMATION
  Report Type: 
  Country: None (occurrence: None)
  Receive Date: 20100601
  Receipt Date: 20100517
  Transmission Date: 20101027
  Serious: Yes (Hospitalization)
  Sender: FDA-Public Use
  Company Number: US-ASTRAZENECA-2010SE24324

PATIENT
  Age: 463 Month
  Sex: Female

DRUGS (6)
  1. SEROQUEL [Suspect]
     Dosage: 300 QAM, 600MG QPM
     Route: 048
     Dates: start: 20070525
  2. PAXIL [Concomitant]
     Dates: start: 20070525
  3. DEPAKOTE SR [Concomitant]
     Dates: start: 20070525
  4. KLONOPIN [Concomitant]
     Dosage: 0.5-1.5MG
     Dates: start: 20070525, end: 20070530
  5. NEURONTIN [Concomitant]
     Dates: start: 20070525
  6. NAMENDA [Concomitant]
     Dates: start: 20070525

REACTIONS (5)
  - BIPOLAR DISORDER [None]
  - CARDIAC FAILURE CONGESTIVE [None]
  - DEMENTIA [None]
  - PNEUMONIA [None]
  - TYPE 2 DIABETES MELLITUS [None]
